FAERS Safety Report 10013455 (Version 1)
Quarter: 2014Q1

REPORT INFORMATION
  Report Type: Spontaneous
  Country: CA (occurrence: CA)
  Receive Date: 20140314
  Receipt Date: 20140314
  Transmission Date: 20141002
  Serious: Yes (Other)
  Sender: FDA-Public Use
  Company Number: CA-PFIZER INC-2014067137

PATIENT
  Age: 52 Year
  Sex: Male

DRUGS (5)
  1. BENEFIX [Suspect]
     Indication: FACTOR IX DEFICIENCY
     Dosage: 3150 IU, UNK
     Route: 042
     Dates: start: 20140304
  2. BENEFIX [Suspect]
     Dosage: 2000 IU, UNK
     Route: 042
     Dates: start: 20140304
  3. BENEFIX [Suspect]
     Dosage: HAD MORE 4 HOURS AFTER LAST DOSE (UNSPECIFIED)
     Route: 042
     Dates: start: 201403
  4. METFORMIN [Concomitant]
     Dosage: UNK
  5. GLYBURIDE [Concomitant]
     Dosage: UNK

REACTIONS (1)
  - Haematuria [Not Recovered/Not Resolved]
